FAERS Safety Report 10238763 (Version 1)
Quarter: 2014Q1

REPORT INFORMATION
  Report Type: Spontaneous
  Country: US (occurrence: None)
  Receive Date: 20140306
  Receipt Date: 20140306
  Transmission Date: 20141002
  Serious: Yes (Hospitalization)
  Sender: FDA-Public Use
  Company Number: 163-21880-13080814

PATIENT
  Age: 84 Year
  Sex: Female

DRUGS (10)
  1. REVLIMID [Suspect]
     Indication: PLASMA CELL MYELOMA
     Dosage: 10 MG, 21 IN 21 D, PO?10/16/2012 - TEMPORARILY INTERRUPTED
     Route: 048
     Dates: start: 20121016
  2. REVLIMID [Suspect]
     Dosage: 10 MG, 21 IN 21 D, PO?10/16/2012 - TEMPORARILY INTERRUPTED
     Route: 048
     Dates: start: 20121016
  3. ACYCLOVIR (ACICLOVIR) (ACICLOVIR) [Concomitant]
  4. CALCIUM (CALCIUM) [Concomitant]
  5. MELPHALAN HCL (MELPHALAN HYROCHLORIDE) [Concomitant]
  6. MORPHINE SULFATE (MORPHINE SULFATE) INJECTION [Concomitant]
  7. OCUVITE (OCUVITE) [Concomitant]
  8. OXYCODONE (OXYCODONE HYDROCHLORIDE) (OXYCODONE) [Concomitant]
  9. PERCOCET (OXYCOCET) [Concomitant]
  10. POTASSIUM CHLORIDE (POTASSIUM CHLORIDE) [Concomitant]

REACTIONS (2)
  - Fall [None]
  - Asthenia [None]
